FAERS Safety Report 6603171-1 (Version None)
Quarter: 2010Q1

REPORT INFORMATION
  Report Type: 
  Country: None (occurrence: None)
  Receive Date: 20100218
  Receipt Date: 20100205
  Transmission Date: 20100710
  Serious: Yes (Death)
  Sender: FDA-Public Use
  Company Number: A-CH2010-33816

PATIENT
  Age: 63 Year
  Sex: Female
  Weight: 38 kg

DRUGS (2)
  1. TRACLEER [Suspect]
     Indication: PULMONARY ARTERIAL HYPERTENSION
     Dosage: 62.5 MG, BID, ORAL
     Route: 048
     Dates: start: 20091104, end: 20091120
  2. OXYGEN (OXYGEN) [Concomitant]

REACTIONS (1)
  - SUDDEN DEATH [None]
